FAERS Safety Report 9681748 (Version 3)
Quarter: 2013Q4

REPORT INFORMATION
  Report Type: Spontaneous
  Country: JP (occurrence: JP)
  Receive Date: 20131111
  Receipt Date: 20131217
  Transmission Date: 20140711
  Serious: Yes (Hospitalization)
  Sender: FDA-Public Use
  Company Number: JP-GLAXOSMITHKLINE-B0941113A

PATIENT
  Age: 66 Year
  Sex: Male

DRUGS (1)
  1. VALTREX [Suspect]
     Indication: HERPES ZOSTER
     Dosage: 250MG PER DAY
     Route: 048
     Dates: start: 20131031, end: 20131101

REACTIONS (8)
  - Toxic encephalopathy [Recovered/Resolved]
  - Depressed level of consciousness [Unknown]
  - Dysarthria [Recovering/Resolving]
  - Dizziness [Recovering/Resolving]
  - Abnormal behaviour [Unknown]
  - Amnesia [Recovering/Resolving]
  - Gait disturbance [Recovering/Resolving]
  - Drooling [Unknown]
